FAERS Safety Report 16624634 (Version 1)
Quarter: 2019Q3

REPORT INFORMATION
  Report Type: Spontaneous
  Country: US (occurrence: US)
  Receive Date: 20190723
  Receipt Date: 20190723
  Transmission Date: 20191004
  Serious: No
  Sender: FDA-Public Use
  Company Number: None

PATIENT
  Age: 64 Year
  Sex: Female
  Weight: 72 kg

DRUGS (1)
  1. CVS HEALTH FAST ACTING LUBRICANT EYE DROPS LOT 18018 EXPIRING 01/20 [Suspect]
     Active Substance: POLYETHYLENE GLYCOL 400\PROPYLENE GLYCOL
     Indication: DRY EYE
     Dosage: ?          QUANTITY:0.5 OUNCE(S);?
     Route: 047
     Dates: start: 20181001, end: 20190701

REACTIONS (2)
  - Instillation site pain [None]
  - Eye irritation [None]

NARRATIVE: CASE EVENT DATE: 20181001
